FAERS Safety Report 4939319-4 (Version None)
Quarter: 2006Q1

REPORT INFORMATION
  Report Type: 
  Country: None (occurrence: None)
  Receive Date: 20060310
  Receipt Date: 20060228
  Transmission Date: 20060701
  Serious: Yes (Hospitalization)
  Sender: FDA-Public Use
  Company Number: 2006UW03501

PATIENT
  Age: 60 Year
  Sex: Female

DRUGS (6)
  1. CRESTOR [Suspect]
     Route: 048
  2. LASIX [Concomitant]
     Dates: end: 20060224
  3. RESTORIL [Concomitant]
     Dates: end: 20060224
  4. PHENERGAN [Concomitant]
     Dates: end: 20060224
  5. LORTAB [Concomitant]
     Dates: end: 20060224
  6. TAKING UP TO 20 MEDS DAILY [Concomitant]

REACTIONS (4)
  - ARTHRALGIA [None]
  - BLOOD CREATINE PHOSPHOKINASE INCREASED [None]
  - MUSCULOSKELETAL CHEST PAIN [None]
  - MYALGIA [None]
